FAERS Safety Report 7647704-5 (Version None)
Quarter: 2011Q3

REPORT INFORMATION
  Report Type: 
  Country: None (occurrence: None)
  Receive Date: 20110801
  Receipt Date: 20110801
  Transmission Date: 20111222
  Serious: Yes (Other)
  Sender: FDA-Public Use
  Company Number: None

PATIENT
  Age: 65 Year
  Sex: Male
  Weight: 104.32 kg

DRUGS (2)
  1. LOTREL [Concomitant]
     Indication: HYPERTENSION
     Dosage: ONE TABLET
     Route: 048
  2. BENICAR HCT [Suspect]
     Indication: HYPERTENSION
     Dosage: ONE TABLET
     Route: 048

REACTIONS (2)
  - PRURITUS [None]
  - LIP OEDEMA [None]
